FAERS Safety Report 6842076-8 (Version None)
Quarter: 2010Q3

REPORT INFORMATION
  Report Type: 
  Country: None (occurrence: None)
  Receive Date: 20100709
  Receipt Date: 20100705
  Transmission Date: 20110219
  Serious: Yes (Other)
  Sender: FDA-Public Use
  Company Number: 2010MA000499

PATIENT
  Age: 73 Year
  Sex: Male

DRUGS (3)
  1. VENLAFAXINE HYDROCHLORIDE [Suspect]
     Indication: DEPRESSION
     Dosage: 75 MG;PO
     Route: 048
     Dates: start: 20100401, end: 20100427
  2. ASPIRIN [Suspect]
     Indication: ANTIPLATELET THERAPY
     Dosage: 75 MG;PO
     Route: 048
  3. SIMVASTATIN [Concomitant]

REACTIONS (3)
  - COAGULATION TIME SHORTENED [None]
  - CONTUSION [None]
  - HAEMORRHAGE [None]
